FAERS Safety Report 12986671 (Version 7)
Quarter: 2017Q1

REPORT INFORMATION
  Report Type: Spontaneous
  Country: BR (occurrence: BR)
  Receive Date: 20161130
  Receipt Date: 20170111
  Transmission Date: 20170428
  Serious: Yes (Death, Hospitalization)
  Sender: FDA-Public Use
  Company Number: BR-PFIZER INC-2016552460

PATIENT
  Age: 69 Year
  Sex: Female

DRUGS (4)
  1. CALCIUM [Concomitant]
     Active Substance: CALCIUM
     Dosage: UNK
  2. ATLANSIL [Suspect]
     Active Substance: AMIODARONE
     Indication: ARRHYTHMIA
     Dosage: UNK
     Route: 048
     Dates: end: 20161112
  3. AMIODARONE HCL [Suspect]
     Active Substance: AMIODARONE HYDROCHLORIDE
     Indication: ARRHYTHMIA
     Dosage: UNK
     Route: 048
     Dates: end: 20161112
  4. VITAMIN B3 [Concomitant]
     Active Substance: NIACIN
     Dosage: UNK

REACTIONS (15)
  - Interstitial lung disease [Fatal]
  - Renal haemorrhage [Not Recovered/Not Resolved]
  - Memory impairment [Not Recovered/Not Resolved]
  - Anaemia [Not Recovered/Not Resolved]
  - Lung infection [Not Recovered/Not Resolved]
  - Coma [Not Recovered/Not Resolved]
  - Urinary retention [Not Recovered/Not Resolved]
  - Multiple organ dysfunction syndrome [Unknown]
  - Renal failure [Not Recovered/Not Resolved]
  - Toxicity to various agents [Fatal]
  - Pulmonary toxicity [Fatal]
  - Syncope [Not Recovered/Not Resolved]
  - Eructation [Not Recovered/Not Resolved]
  - Weight decreased [Not Recovered/Not Resolved]
  - Decreased appetite [Not Recovered/Not Resolved]

NARRATIVE: CASE EVENT DATE: 201610
